FAERS Safety Report 22394802 (Version 1)
Quarter: 2023Q2

REPORT INFORMATION
  Report Type: Spontaneous
  Country: US (occurrence: None)
  Receive Date: 20230531
  Receipt Date: 20230531
  Transmission Date: 20230722
  Serious: Yes (Other)
  Sender: FDA-Public Use
  Company Number: None

PATIENT
  Sex: Female

DRUGS (4)
  1. PROGESTERONE [Suspect]
     Active Substance: PROGESTERONE
     Indication: Infertility
     Dosage: FREQUENCY : AS DIRECTED;?
     Route: 058
     Dates: start: 20221026
  2. PROGESTERONE [Suspect]
     Active Substance: PROGESTERONE
     Dosage: FREQUENCY : AS DIRECTED;?
     Route: 058
  3. ATIVAN [Concomitant]
  4. PROZAC [Concomitant]
     Active Substance: FLUOXETINE HYDROCHLORIDE

REACTIONS (1)
  - Abortion spontaneous [None]
